FAERS Safety Report 8450753 (Version 7)
Quarter: 2014Q2

REPORT INFORMATION
  Report Type: Report from Study
  Country: US (occurrence: US)
  Receive Date: 20120309
  Receipt Date: 20140508
  Transmission Date: 20141212
  Serious: Yes (Hospitalization, Other)
  Sender: FDA-Public Use
  Company Number: US-TEVA-326341USA

PATIENT
  Age: 76 Year
  Sex: Male
  Weight: 76.7 kg

DRUGS (35)
  1. TREANDA [Suspect]
     Indication: B-CELL LYMPHOMA
     Route: 042
     Dates: start: 20111215
  2. TREANDA [Suspect]
     Dosage: ONCE IN FOUR WEEKS
     Route: 042
     Dates: start: 20111216
  3. PREDNISONE [Suspect]
     Indication: B-CELL LYMPHOMA
     Dosage: ONCE EVERY THREE WEEKS
     Route: 048
     Dates: start: 20111229
  4. OBINUTUZUMAB [Suspect]
     Indication: B-CELL LYMPHOMA
     Dosage: CONCENTRATION 4MG/ML, ONCE EVERY 3 WEEKS
     Route: 042
     Dates: start: 20111215
  5. TELMISARTAN [Concomitant]
     Indication: BLOOD PRESSURE
     Dates: start: 20120116
  6. METOPROLOL TARTRATE [Concomitant]
     Indication: BLOOD PRESSURE
     Dates: start: 20120117
  7. EZETIMIBE W/SIMVASTATIN [Concomitant]
     Indication: BLOOD CHOLESTEROL
     Dates: end: 20120116
  8. ASPIRIN [Concomitant]
     Indication: PAIN
     Dates: end: 20120130
  9. MULTIVITAMINS [Concomitant]
  10. ALLOPURINOL [Concomitant]
     Indication: HYPERURICAEMIA
     Dates: end: 20120111
  11. PARACETAMOL [Concomitant]
     Indication: PYREXIA
     Dates: start: 20111215, end: 20120120
  12. LORAZEPAM [Concomitant]
     Indication: NAUSEA
     Dates: start: 20120101, end: 20131226
  13. LORAZEPAM [Concomitant]
     Indication: INSOMNIA
  14. DIPHENHYDRAMINE HYDROCHLORIDE [Concomitant]
     Indication: ANTIALLERGIC THERAPY
     Dates: start: 20120108
  15. DIPHENHYDRAMINE HYDROCHLORIDE [Concomitant]
     Dates: start: 20111215
  16. DEXTROMETHORPHAN [Concomitant]
     Indication: COUGH
     Dates: start: 20120106
  17. AZITHROMYCIN [Concomitant]
     Indication: INFECTION
     Dates: start: 20120101, end: 20120105
  18. COMPAZINE [Concomitant]
     Indication: NAUSEA
     Dates: start: 20111215
  19. COMPAZINE [Concomitant]
     Dates: start: 20111216
  20. ZOFRAN [Concomitant]
     Dates: start: 20111222
  21. MULTIVITAMIN AND MINERAL SUPPLEMENT [Concomitant]
  22. DOCUSATE SODIUM [Concomitant]
     Indication: CONSTIPATION
     Dates: start: 201112
  23. SODIUM CHLORIDE [Concomitant]
  24. PEGFILGRASTIM [Concomitant]
     Indication: INFECTION
     Dates: start: 20111216, end: 20111216
  25. PLASMA, FRESH FROZEN [Concomitant]
  26. FLUTICASONE PROPIONATE [Concomitant]
     Indication: RHINITIS ALLERGIC
     Dates: end: 20120130
  27. VYTORIN [Concomitant]
     Indication: BLOOD CHOLESTEROL
     Dates: end: 20120116
  28. VITAMIN C [Concomitant]
     Indication: VITAMIN SUPPLEMENTATION
     Dates: end: 20120130
  29. OMEGA-3 FATTY ACIDS [Concomitant]
     Indication: PHYTOTHERAPY
     Dates: end: 20120130
  30. LORATADINE [Concomitant]
     Indication: RHINITIS ALLERGIC
     Dates: end: 20120130
  31. ENSURE [Concomitant]
     Indication: DECREASED APPETITE
     Dates: start: 20120109
  32. ENSURE [Concomitant]
     Indication: WEIGHT DECREASED
     Dates: start: 20120612
  33. METHYLPREDNISOLONE [Concomitant]
     Indication: DIARRHOEA
  34. PHYTOMENADIONE [Concomitant]
     Indication: HAEMORRHAGE
     Dates: start: 20120118
  35. OMEPRAZOLE [Concomitant]
     Dates: start: 20120125

REACTIONS (5)
  - Hepatotoxicity [Recovered/Resolved]
  - Alanine aminotransferase increased [Recovered/Resolved]
  - Sepsis [Recovered/Resolved]
  - Hypotension [Recovered/Resolved]
  - Pyrexia [Not Recovered/Not Resolved]
